FAERS Safety Report 9266170 (Version 1)
Quarter: 2013Q2

REPORT INFORMATION
  Report Type: Report from Study
  Country: US (occurrence: US)
  Receive Date: 20130502
  Receipt Date: 20130502
  Transmission Date: 20140414
  Serious: No
  Sender: FDA-Public Use
  Company Number: US-009507513-1304USA017370

PATIENT
  Age: 22 Year
  Sex: Female
  Weight: 61.59 kg

DRUGS (1)
  1. IMPLANON [Suspect]
     Dosage: UNK
     Route: 059
     Dates: start: 20080930, end: 20130429

REACTIONS (2)
  - Incorrect drug administration duration [Unknown]
  - Medical device removal [Unknown]
